FAERS Safety Report 6965017-1 (Version None)
Quarter: 2010Q3

REPORT INFORMATION
  Report Type: 
  Country: None (occurrence: None)
  Receive Date: 20100903
  Receipt Date: 20100825
  Transmission Date: 20110219
  Serious: Yes (Hospitalization)
  Sender: FDA-Public Use
  Company Number: FR-JNJFOC-20100603440

PATIENT
  Age: 52 Year
  Sex: Female

DRUGS (8)
  1. REMICADE [Suspect]
     Indication: ANKYLOSING SPONDYLITIS
     Route: 042
  2. REMICADE [Suspect]
     Dosage: DOSE INCREASED TO 4 MG/KG THEN 5 MG/KG.
     Route: 042
  3. REMICADE [Suspect]
     Dosage: 230 MG
     Route: 042
  4. METHOTREXATE [Suspect]
     Indication: ANKYLOSING SPONDYLITIS
  5. ENBREL [Suspect]
     Indication: ANKYLOSING SPONDYLITIS
     Route: 058
  6. HUMIRA [Suspect]
     Indication: ANKYLOSING SPONDYLITIS
  7. HUMIRA [Suspect]
     Dosage: DURATION OF THERAPY AT THIS TIME WAS 17 MONTHS
  8. NSAID [Concomitant]
     Indication: ANKYLOSING SPONDYLITIS

REACTIONS (7)
  - ANKYLOSING SPONDYLITIS [None]
  - GASTROINTESTINAL DISORDER [None]
  - LEUKOPENIA [None]
  - LIVER DISORDER [None]
  - MYELODYSPLASTIC SYNDROME [None]
  - SKIN REACTION [None]
  - TREATMENT FAILURE [None]
